FAERS Safety Report 9056474 (Version 6)
Quarter: 2014Q3

REPORT INFORMATION
  Report Type: Spontaneous
  Country: US (occurrence: US)
  Receive Date: 20130204
  Receipt Date: 20140828
  Transmission Date: 20150326
  Serious: Yes (Hospitalization, Disabling, Other)
  Sender: FDA-Public Use
  Company Number: US-009507513-1302USA000355

PATIENT
  Sex: Male
  Weight: 122.45 kg

DRUGS (2)
  1. PROPECIA [Suspect]
     Active Substance: FINASTERIDE
     Dosage: 1 MG, QD
     Route: 048
     Dates: start: 20000417, end: 20120731
  2. PROPECIA [Suspect]
     Active Substance: FINASTERIDE
     Indication: ANDROGENETIC ALOPECIA
     Dosage: 1 MG, QD
     Route: 048
     Dates: start: 200411, end: 201203

REACTIONS (32)
  - Cognitive disorder [Unknown]
  - Atrial fibrillation [Unknown]
  - Umbilical hernia [Unknown]
  - Sleep apnoea syndrome [Unknown]
  - Fatigue [Unknown]
  - Abdominal hernia [Unknown]
  - Hydrocele [Unknown]
  - Arthralgia [Unknown]
  - Anxiety [Unknown]
  - Sexual dysfunction [Unknown]
  - Drug ineffective [Unknown]
  - Stress [Unknown]
  - Cardiac pacemaker insertion [Unknown]
  - Erectile dysfunction [Unknown]
  - Ligament rupture [Unknown]
  - Blood cholesterol increased [Unknown]
  - Malaise [Unknown]
  - Cardiac disorder [Unknown]
  - Cardiac disorder [Unknown]
  - Hypogonadism [Unknown]
  - Dyspnoea [Unknown]
  - Hyperlipidaemia [Unknown]
  - Catheter removal [Unknown]
  - Cerebrovascular accident [Unknown]
  - Depression [Unknown]
  - Cyst [Unknown]
  - Haemorrhoids [Unknown]
  - Snoring [Unknown]
  - Fatigue [Unknown]
  - Varicocele [Unknown]
  - Oropharyngeal pain [Unknown]
  - Middle insomnia [Unknown]

NARRATIVE: CASE EVENT DATE: 200704
